FAERS Safety Report 24569666 (Version 1)
Quarter: 2024Q4

REPORT INFORMATION
  Report Type: Spontaneous
  Country: CN (occurrence: CN)
  Receive Date: 20241031
  Receipt Date: 20241031
  Transmission Date: 20250115
  Serious: Yes (Hospitalization)
  Sender: AMGEN
  Company Number: CN-AMGEN-CHNSP2024213275

PATIENT

DRUGS (9)
  1. REPATHA [Suspect]
     Active Substance: EVOLOCUMAB
     Indication: Acute myocardial infarction
     Dosage: FIRST SUBCUTANEOUS INJECTION WAS GIVEN AFTER THE SURGERY
     Route: 058
  2. REPATHA [Suspect]
     Active Substance: EVOLOCUMAB
     Dosage: ANOTHER INJECTION 15 DAYS LATER
     Route: 058
  3. LEVOCARNITINE [Concomitant]
     Active Substance: LEVOCARNITINE
     Dosage: 4.0 G WAS MIXED INTO 250 ML OF 0.9% SODIUM CHLORIDE INJECTION
     Route: 040
  4. ASPIRIN [Concomitant]
     Active Substance: ASPIRIN
     Dosage: 6 TABLETS ORALLY
     Route: 048
  5. ASPIRIN [Concomitant]
     Active Substance: ASPIRIN
     Dosage: 2 TABLETS PER DOSE, ONCE DAILY
     Route: 048
  6. TICAGRELOR [Concomitant]
     Active Substance: TICAGRELOR
     Dosage: 3 TABLETS ORALLY
     Route: 048
  7. TICAGRELOR [Concomitant]
     Active Substance: TICAGRELOR
     Dosage: 2 TABLETS PER DOSE, TWICE DAILY
     Route: 048
  8. ATORVASTATIN CALCIUM [Concomitant]
     Active Substance: ATORVASTATIN CALCIUM
     Dosage: I TABLET PER DOSE, ONCE EVERY EVENING
     Route: 065
  9. ISOSORBIDE MONONITRATE [Concomitant]
     Active Substance: ISOSORBIDE MONONITRATE
     Dosage: I TABLET PER DOSE, TWICE DAILY
     Route: 065

REACTIONS (1)
  - Cardiac failure [Unknown]
